FAERS Safety Report 20822613 (Version 2)
Quarter: 2022Q3

REPORT INFORMATION
  Report Type: Spontaneous
  Country: US (occurrence: US)
  Receive Date: 20220512
  Receipt Date: 20220809
  Transmission Date: 20221027
  Serious: No
  Sender: FDA-Public Use
  Company Number: US-CELGENE-USA-20211203345

PATIENT
  Age: 84 Year
  Sex: Female

DRUGS (3)
  1. REVLIMID [Suspect]
     Active Substance: LENALIDOMIDE
     Indication: Plasma cell myeloma
     Dosage: /MAR/2020-10 MILLIGRAM
     Route: 048
     Dates: start: 202002
  2. REVLIMID [Suspect]
     Active Substance: LENALIDOMIDE
     Dosage: 10 MILLIGRAM
     Route: 048
     Dates: start: 202007
  3. REVLIMID [Suspect]
     Active Substance: LENALIDOMIDE
     Dosage: FREQ: TAKE 1 CAPSULE BY MOUTH ONCE A DAY FOR 3 WEEKS ON AND 1 WEEK OFF
     Route: 048
     Dates: start: 20200207

REACTIONS (5)
  - Abdominal discomfort [Unknown]
  - Asthenia [Unknown]
  - Gait inability [Unknown]
  - Product prescribing issue [Unknown]
  - Constipation [Unknown]
